FAERS Safety Report 7175814-8 (Version None)
Quarter: 2010Q4

REPORT INFORMATION
  Report Type: 
  Country: None (occurrence: None)
  Receive Date: 20101220
  Receipt Date: 20100405
  Transmission Date: 20110411
  Serious: No
  Sender: FDA-Public Use
  Company Number: US-AMGEN-TCS394887

PATIENT

DRUGS (7)
  1. ENBREL [Suspect]
     Indication: RHEUMATOID ARTHRITIS
     Dosage: 50 MG, QWK
     Route: 058
     Dates: start: 20100105
  2. METHOTREXATE [Concomitant]
     Dosage: 25 MG, QWK
     Route: 048
  3. SULFASALAZINE [Concomitant]
     Dosage: 500 MG, QD
  4. HYDROXYCHLOROQUINE SULFATE [Concomitant]
     Dosage: 200 MG, BID
  5. FOLIC ACID [Concomitant]
     Dosage: 1 MG, QD
  6. CALCIUM [Concomitant]
     Dosage: UNK UNK, BID
  7. PREDNISONE [Concomitant]

REACTIONS (2)
  - ERYTHEMA [None]
  - JOINT CREPITATION [None]
